FAERS Safety Report 20562466 (Version 2)
Quarter: 2022Q1

REPORT INFORMATION
  Report Type: Spontaneous
  Country: PT (occurrence: PT)
  Receive Date: 20220307
  Receipt Date: 20220310
  Transmission Date: 20220423
  Serious: Yes (Other)
  Sender: FDA-Public Use
  Company Number: None

PATIENT
  Age: 29 Year
  Sex: Female

DRUGS (2)
  1. IBUPROFEN [Suspect]
     Active Substance: IBUPROFEN
     Indication: Neck pain
     Dosage: UNK
     Route: 048
     Dates: start: 20211127, end: 20211127
  2. AMOXICILLIN\CLAVULANIC ACID [Suspect]
     Active Substance: AMOXICILLIN\CLAVULANIC ACID
     Indication: Product used for unknown indication
     Dosage: UNK

REACTIONS (4)
  - Rash pruritic [Recovered/Resolved]
  - Angioedema [Recovered/Resolved]
  - Urticaria [Unknown]
  - Dyspnoea [Unknown]

NARRATIVE: CASE EVENT DATE: 20211127
